FAERS Safety Report 5410820-2 (Version None)
Quarter: 2007Q3

REPORT INFORMATION
  Report Type: 
  Country: None (occurrence: None)
  Receive Date: 20070810
  Receipt Date: 20070806
  Transmission Date: 20080115
  Serious: Yes (Life-Threatening)
  Sender: FDA-Public Use
  Company Number: PHBS2007IN13102

PATIENT
  Age: 35 Year
  Sex: Male
  Weight: 52 kg

DRUGS (7)
  1. NIFEDIPINE [Suspect]
     Indication: HYPERTENSION
     Dosage: 30 MG/D
  2. CAPTOPRIL [Suspect]
     Indication: HYPERTENSION
     Dosage: 10 MG/D
  3. PENTAZOCINE LACTATE [Concomitant]
     Dosage: 15 MG, ONCE/SINGLE
     Route: 042
  4. PROMETHAZINE [Concomitant]
     Dosage: 25 MG, ONCE/SINGLE
     Route: 030
  5. THIOPENTAL SODIUM [Concomitant]
     Dosage: 5 MG/KG, ONCE/SINGLE
     Route: 042
  6. PANCURONIUM BROMIDE [Concomitant]
     Dosage: 8 MG, ONCE/SINGLE
     Route: 042
  7. CYCLOSPORINE [Suspect]
     Indication: RENAL TRANSPLANT
     Dosage: 8 MG/KG/D
     Route: 048

REACTIONS (14)
  - BLOOD POTASSIUM INCREASED [None]
  - BLOOD PRESSURE INCREASED [None]
  - CARDIAC FAILURE [None]
  - CARDIAC MASSAGE [None]
  - CARDIOVERSION [None]
  - CENTRAL VENOUS PRESSURE INCREASED [None]
  - FLUID OVERLOAD [None]
  - HAEMODIALYSIS [None]
  - HYPERKALAEMIA [None]
  - HYPOVENTILATION [None]
  - OXYGEN SATURATION DECREASED [None]
  - PULMONARY OEDEMA [None]
  - VENTRICULAR FIBRILLATION [None]
  - VENTRICULAR TACHYCARDIA [None]
